FAERS Safety Report 15019147 (Version 2)
Quarter: 2018Q3

REPORT INFORMATION
  Report Type: Spontaneous
  Country: US (occurrence: US)
  Receive Date: 20180617
  Receipt Date: 20180916
  Transmission Date: 20181010
  Serious: Yes (Hospitalization)
  Sender: FDA-Public Use
  Company Number: US-JNJFOC-20180606382

PATIENT
  Age: 75 Year

DRUGS (1)
  1. XARELTO [Suspect]
     Active Substance: RIVAROXABAN
     Indication: CAROTID ARTERY OCCLUSION
     Route: 048
     Dates: start: 201512, end: 201607

REACTIONS (3)
  - Off label use [Unknown]
  - Gastrointestinal haemorrhage [Unknown]
  - Product use in unapproved indication [Unknown]

NARRATIVE: CASE EVENT DATE: 201512
